FAERS Safety Report 8066801-6 (Version None)
Quarter: 2012Q1

REPORT INFORMATION
  Report Type: 
  Country: None (occurrence: None)
  Receive Date: 20120124
  Receipt Date: 20120116
  Transmission Date: 20120608
  Serious: Yes (Hospitalization)
  Sender: FDA-Public Use
  Company Number: GB-ROCHE-1030641

PATIENT
  Sex: Female

DRUGS (4)
  1. METHOTREXATE [Concomitant]
  2. MABTHERA [Suspect]
     Indication: PRODUCT USED FOR UNKNOWN INDICATION
     Dates: start: 20081125, end: 20110810
  3. MABTHERA [Suspect]
     Dates: start: 20111109
  4. STEROIDS NOS [Concomitant]

REACTIONS (2)
  - ABDOMINAL PAIN [None]
  - LUNG CONSOLIDATION [None]
